FAERS Safety Report 8400116-9 (Version None)
Quarter: 2012Q2

REPORT INFORMATION
  Report Type: 
  Country: None (occurrence: None)
  Receive Date: 20120525
  Receipt Date: 20120514
  Transmission Date: 20120825
  Serious: Yes (Life-Threatening)
  Sender: FDA-Public Use
  Company Number: 1292903

PATIENT
  Age: 68 Year
  Sex: Female
  Weight: 84 kg

DRUGS (28)
  1. WELLBUTRIN [Suspect]
     Indication: DEPRESSION
     Dosage: ORAL
     Route: 048
  2. WELLBUTRIN [Suspect]
     Indication: ANXIETY
     Dosage: ORAL
     Route: 048
  3. (CALCIUM) [Concomitant]
  4. FOSAMAX [Concomitant]
  5. LIPITOR [Concomitant]
  6. FENTANYL CITRATE [Suspect]
     Indication: PRODUCT USED FOR UNKNOWN INDICATION
     Dosage: 100 MCG, 50 MCG
  7. FENTANYL CITRATE [Suspect]
     Indication: ANALGESIC THERAPY
     Dosage: 100 MCG, 50 MCG
  8. FENTANYL CITRATE [Suspect]
     Indication: INDUCTION OF ANAESTHESIA
     Dosage: 100 MCG, 50 MCG
  9. FLUDROCORTISONE ACETATE [Concomitant]
  10. HYDROMORPHONE HYDROCHLORIDE [Concomitant]
  11. (MULTIVITAMINS  /00831701/) [Concomitant]
  12. PROPOFOL [Concomitant]
  13. GABITRIL [Concomitant]
  14. LISINOPRIL [Concomitant]
  15. LEVOTHYROXINE SODIUM [Concomitant]
  16. ONDANSETRON [Suspect]
     Indication: PRODUCT USED FOR UNKNOWN INDICATION
     Dosage: 4 MG
  17. OXYCODONE HYDROCHLORIDE [Concomitant]
  18. CYMBALTA [Suspect]
     Indication: ANXIETY
     Dosage: ORAL
     Route: 048
  19. CYMBALTA [Suspect]
     Indication: DEPRESSION
     Dosage: ORAL
     Route: 048
  20. GABAPENTIN [Concomitant]
  21. (TRIAMTERENE AND HYDROCHLORTHIAZIDE) [Concomitant]
  22. (SENNA /00142201/) [Concomitant]
  23. PAXIL [Suspect]
     Indication: DEPRESSION
     Dosage: ORAL
     Route: 047
  24. PAXIL [Suspect]
     Indication: ANXIETY
     Dosage: ORAL
     Route: 047
  25. SUCCINYLCHOLINE CHLORIDE [Concomitant]
  26. CLONAZEPAM [Concomitant]
  27. OMEPRAZOLE [Concomitant]
  28. DESFLURANE [Concomitant]

REACTIONS (1)
  - SEROTONIN SYNDROME [None]
